FAERS Safety Report 4562916-5 (Version None)
Quarter: 2005Q1

REPORT INFORMATION
  Report Type: 
  Country: None (occurrence: None)
  Receive Date: 20050121
  Receipt Date: 20050106
  Transmission Date: 20050727
  Serious: Yes (Hospitalization)
  Sender: FDA-Public Use
  Company Number: 2005CG00057

PATIENT
  Age: 4 Year
  Sex: Male

DRUGS (4)
  1. PULMICORT [Suspect]
     Indication: CYSTIC FIBROSIS
     Dosage: 200 UG BID IH
     Route: 055
     Dates: start: 20041105, end: 20041121
  2. PULMICORT [Concomitant]
  3. BRICANYL [Concomitant]
  4. SEREVENT [Concomitant]

REACTIONS (4)
  - CONDITION AGGRAVATED [None]
  - CYSTIC FIBROSIS [None]
  - DEVICE FAILURE [None]
  - INFLAMMATION [None]
